FAERS Safety Report 12288182 (Version 1)
Quarter: 2016Q2

REPORT INFORMATION
  Report Type: Spontaneous
  Country: SE (occurrence: SE)
  Receive Date: 20160420
  Receipt Date: 20160420
  Transmission Date: 20160815
  Serious: Yes (Death)
  Sender: FDA-Public Use
  Company Number: SE-ASTRAZENECA-2016SE40752

PATIENT
  Age: 81 Year
  Sex: Female

DRUGS (21)
  1. CETIRIZINE [Concomitant]
     Active Substance: CETIRIZINE HYDROCHLORIDE
  2. MEMANTINE. [Concomitant]
     Active Substance: MEMANTINE
  3. SOBRIL [Concomitant]
     Active Substance: OXAZEPAM
  4. VENTOLINE [Concomitant]
     Active Substance: ALBUTEROL
  5. XARELTO [Suspect]
     Active Substance: RIVAROXABAN
     Indication: CEREBROVASCULAR ACCIDENT PROPHYLAXIS
     Route: 065
  6. METFORMIN [Concomitant]
     Active Substance: METFORMIN HYDROCHLORIDE
  7. METOPROLOL. [Concomitant]
     Active Substance: METOPROLOL
  8. ALVEDON [Concomitant]
     Active Substance: ACETAMINOPHEN
  9. GLYCERYL TRINITRATE [Concomitant]
     Active Substance: NITROGLYCERIN
  10. BRILIQUE [Suspect]
     Active Substance: TICAGRELOR
     Route: 048
     Dates: start: 20160314
  11. MONOKET [Concomitant]
     Active Substance: ISOSORBIDE MONONITRATE
  12. SPIRIVA [Concomitant]
     Active Substance: TIOTROPIUM BROMIDE MONOHYDRATE
  13. ZOLPIDEM [Concomitant]
     Active Substance: ZOLPIDEM\ZOLPIDEM TARTRATE
  14. OMEPRAZOLE. [Concomitant]
     Active Substance: OMEPRAZOLE
  15. DIGOXIN. [Concomitant]
     Active Substance: DIGOXIN
  16. SIMVASTATIN. [Concomitant]
     Active Substance: SIMVASTATIN
  17. OXIS [Concomitant]
     Active Substance: FORMOTEROL FUMARATE
  18. RAMIPRIL. [Concomitant]
     Active Substance: RAMIPRIL
  19. LEVAXIN [Concomitant]
     Active Substance: LEVOTHYROXINE SODIUM
  20. INSUMAN [Concomitant]
     Active Substance: INSULIN HUMAN
  21. PULMICORT TURBUHALER [Concomitant]
     Active Substance: BUDESONIDE

REACTIONS (1)
  - Subdural haematoma [Fatal]

NARRATIVE: CASE EVENT DATE: 20160403
